FAERS Safety Report 18575283 (Version 1)
Quarter: 2020Q4

REPORT INFORMATION
  Report Type: Spontaneous
  Country: US (occurrence: US)
  Receive Date: 20201202
  Receipt Date: 20201202
  Transmission Date: 20210114
  Serious: No
  Sender: FDA-Public Use
  Company Number: None

PATIENT
  Age: 61 Year
  Sex: Male

DRUGS (1)
  1. PREGABALIN (PREGABLIN 75MG CAP, UD) [Suspect]
     Active Substance: PREGABALIN
     Indication: PAIN
     Route: 048
     Dates: start: 20181102, end: 20181102

REACTIONS (1)
  - Rash [None]

NARRATIVE: CASE EVENT DATE: 20181102
